FAERS Safety Report 9788366 (Version 2)
Quarter: 2020Q3

REPORT INFORMATION
  Report Type: Spontaneous
  Country: PT (occurrence: PT)
  Receive Date: 20131230
  Receipt Date: 20200721
  Transmission Date: 20201103
  Serious: Yes (Other)
  Sender: FDA-Public Use
  Company Number: PHHY2013PT151332

PATIENT
  Age: 64 Year
  Sex: Male

DRUGS (2)
  1. PEMETREXED. [Concomitant]
     Active Substance: PEMETREXED
     Indication: PRODUCT USED FOR UNKNOWN INDICATION
     Dosage: 2ND LINE THERAPY
     Route: 065
  2. ZOLEDRONIC ACID [Suspect]
     Active Substance: ZOLEDRONIC ACID
     Indication: LUNG ADENOCARCINOMA STAGE IV
     Dosage: 4 MG, EVERY 3/3 WEEKS (FOR 12 MONTHS) 18 TREATMENTS
     Route: 042
     Dates: end: 201206

REACTIONS (2)
  - Osteonecrosis of jaw [Recovered/Resolved]
  - Dysaesthesia [Recovering/Resolving]

NARRATIVE: CASE EVENT DATE: 201103
